FAERS Safety Report 7314414-3 (Version None)
Quarter: 2011Q1

REPORT INFORMATION
  Report Type: 
  Country: None (occurrence: None)
  Receive Date: 20110225
  Receipt Date: 20100811
  Transmission Date: 20110831
  Serious: No
  Sender: FDA-Public Use
  Company Number: US-MYLANLABS-2010S1014795

PATIENT
  Sex: Male

DRUGS (3)
  1. CLARAVIS [Suspect]
     Route: 048
  2. AMNESTEEM [Suspect]
     Route: 048
  3. AMNESTEEM [Suspect]
     Route: 048

REACTIONS (1)
  - ADVERSE REACTION [None]
